FAERS Safety Report 9763321 (Version 1)
Quarter: 2013Q4

REPORT INFORMATION
  Report Type: Spontaneous
  Country: US (occurrence: US)
  Receive Date: 20131216
  Receipt Date: 20131216
  Transmission Date: 20140711
  Serious: No
  Sender: FDA-Public Use
  Company Number: US-BIOGENIDEC-2013BI109718

PATIENT
  Age: 47 Year
  Sex: Female

DRUGS (11)
  1. TECFIDERA [Suspect]
     Indication: MULTIPLE SCLEROSIS
     Route: 048
     Dates: start: 20131028, end: 20131103
  2. TECFIDERA [Suspect]
     Indication: MULTIPLE SCLEROSIS
     Route: 048
     Dates: start: 20131104
  3. LYRICA [Concomitant]
  4. CYMBALTA [Concomitant]
  5. BACLOFEN [Concomitant]
  6. LEVOTHYROXINE [Concomitant]
  7. TRIAMTERENE [Concomitant]
  8. CLONAZEPAM [Concomitant]
  9. AMRIX [Concomitant]
  10. TRAMADOL [Concomitant]
  11. METFORMIN [Concomitant]

REACTIONS (1)
  - Abdominal distension [Not Recovered/Not Resolved]
